FAERS Safety Report 19750359 (Version 1)
Quarter: 2021Q3

REPORT INFORMATION
  Report Type: Spontaneous
  Country: US (occurrence: US)
  Receive Date: 20210826
  Receipt Date: 20210826
  Transmission Date: 20211014
  Serious: Yes (Disabling)
  Sender: FDA-Public Use
  Company Number: None

PATIENT
  Age: 24 Year
  Sex: Male
  Weight: 78.75 kg

DRUGS (2)
  1. FINASTERIDE. [Suspect]
     Active Substance: FINASTERIDE
     Indication: ALOPECIA
     Dates: start: 20190405, end: 20200712
  2. MINOXIDIL. [Suspect]
     Active Substance: MINOXIDIL

REACTIONS (2)
  - Erectile dysfunction [None]
  - Depression [None]

NARRATIVE: CASE EVENT DATE: 20210720
